FAERS Safety Report 25532050 (Version 3)
Quarter: 2025Q3

REPORT INFORMATION
  Report Type: Spontaneous
  Country: US (occurrence: US)
  Receive Date: 20250709
  Receipt Date: 20250925
  Transmission Date: 20251021
  Serious: No
  Sender: MADRIGAL PHARMACEUTICALS
  Company Number: US-MADRIGAL PHARMACEUTICALS, INC-2025REZ6466

PATIENT

DRUGS (3)
  1. REZDIFFRA [Suspect]
     Active Substance: RESMETIROM
     Indication: Metabolic dysfunction-associated steatohepatitis
     Dosage: 80 MILLIGRAM, QD
     Route: 048
     Dates: start: 20250531
  2. REZDIFFRA [Suspect]
     Active Substance: RESMETIROM
     Indication: Hepatic cirrhosis
  3. DULCOLAX (BISACODYL) [Suspect]
     Active Substance: BISACODYL
     Indication: Constipation
     Route: 065
     Dates: start: 2025

REACTIONS (7)
  - Steatorrhoea [Unknown]
  - Fatigue [Unknown]
  - Faeces soft [Unknown]
  - Constipation [Recovered/Resolved]
  - Dizziness [Unknown]
  - Therapy interrupted [Unknown]
  - Product use in unapproved indication [Unknown]

NARRATIVE: CASE EVENT DATE: 20250101
